FAERS Safety Report 8736336 (Version 2)
Quarter: 2013Q1

REPORT INFORMATION
  Report Type: Spontaneous
  Country: BR (occurrence: BR)
  Receive Date: 20120822
  Receipt Date: 20130319
  Transmission Date: 20140127
  Serious: No
  Sender: FDA-Public Use
  Company Number: BR-ROCHE-1040280

PATIENT
  Sex: Female
  Weight: 65 kg

DRUGS (2)
  1. ROACUTAN [Suspect]
     Indication: ACNE
     Route: 048
     Dates: start: 20110210, end: 20111031
  2. DIANE [Concomitant]
     Route: 065
     Dates: end: 201112

REACTIONS (1)
  - Pregnancy [Unknown]
